FAERS Safety Report 4978885-X (Version None)
Quarter: 2006Q2

REPORT INFORMATION
  Report Type: 
  Country: None (occurrence: None)
  Receive Date: 20060417
  Receipt Date: 20060405
  Transmission Date: 20061013
  Serious: Yes (Death, Hospitalization)
  Sender: FDA-Public Use
  Company Number: 2006-00069

PATIENT
  Age: 57 Year
  Sex: Male
  Weight: 56 kg

DRUGS (6)
  1. VELCADE [Suspect]
     Indication: MULTIPLE MYELOMA
     Dosage: 2.10 MG, INTRAVENOUS
     Route: 042
     Dates: start: 20051111, end: 20051230
  2. ZOLEDRONIC ACID (ZOLEDRONIC ACID) [Concomitant]
  3. SPECTRAPAIN (CODEINE PHOSPHATE, PARACETAMOL) [Concomitant]
  4. ALLOPURINOL [Concomitant]
  5. AUGMENTIN '125' [Concomitant]
  6. ERYTHROMYCIN [Concomitant]

REACTIONS (3)
  - DEHYDRATION [None]
  - PULMONARY EMBOLISM [None]
  - RENAL IMPAIRMENT [None]
